FAERS Safety Report 8256035-4 (Version None)
Quarter: 2012Q2

REPORT INFORMATION
  Report Type: 
  Country: None (occurrence: None)
  Receive Date: 20120403
  Receipt Date: 20120326
  Transmission Date: 20120825
  Serious: Yes (Other)
  Sender: FDA-Public Use
  Company Number: US-ASTRAZENECA-2012SE20259

PATIENT
  Age: 73 Year
  Sex: Male

DRUGS (2)
  1. CASODEX [Suspect]
     Route: 048
  2. NEXIUM [Suspect]
     Route: 048

REACTIONS (2)
  - NEOPLASM [None]
  - GASTROINTESTINAL INFECTION [None]
